FAERS Safety Report 15519688 (Version 1)
Quarter: 2018Q4

REPORT INFORMATION
  Report Type: Spontaneous
  Country: ES (occurrence: ES)
  Receive Date: 20181017
  Receipt Date: 20181017
  Transmission Date: 20190205
  Serious: Yes (Hospitalization)
  Sender: FDA-Public Use
  Company Number: ES-EISAI MEDICAL RESEARCH-EC-2018-046146

PATIENT
  Age: 52 Year
  Sex: Male
  Weight: 73 kg

DRUGS (4)
  1. VIMPAT [Suspect]
     Active Substance: LACOSAMIDE
     Indication: PARTIAL SEIZURES
     Dosage: 200 MG-0-250 MG
     Route: 048
     Dates: start: 20141216, end: 20180928
  2. VIMPAT [Suspect]
     Active Substance: LACOSAMIDE
     Dosage: 14 TABLETS (TOTAL DOSE UNSPECIFIED)
     Route: 048
     Dates: start: 20180929, end: 20180929
  3. FYCOMPA [Suspect]
     Active Substance: PERAMPANEL
     Indication: PARTIAL SEIZURES
     Route: 048
     Dates: start: 20180424, end: 20180930
  4. VIMPAT [Suspect]
     Active Substance: LACOSAMIDE
     Dosage: 200 MG-0-250 MG
     Route: 048
     Dates: start: 2018

REACTIONS (1)
  - Suicide attempt [Recovered/Resolved]

NARRATIVE: CASE EVENT DATE: 20180929
